FAERS Safety Report 10191059 (Version 2)
Quarter: 2014Q2

REPORT INFORMATION
  Report Type: Spontaneous
  Country: US (occurrence: US)
  Receive Date: 20140523
  Receipt Date: 20140626
  Transmission Date: 20141212
  Serious: Yes (Death, Other)
  Sender: FDA-Public Use
  Company Number: US-AMGEN-USASP2014037059

PATIENT
  Age: 94 Year
  Sex: Female

DRUGS (6)
  1. PROLIA [Suspect]
     Indication: OSTEOPOROSIS
     Dosage: 60 MG, Q6MO
     Route: 058
     Dates: start: 20130626, end: 20140410
  2. CADUET [Concomitant]
     Indication: HYPERTENSION
     Dosage: 5/10 MG, QD
     Route: 048
     Dates: start: 20110518, end: 20140410
  3. PRADAXA [Concomitant]
     Indication: PROPHYLAXIS
     Dosage: 75 MG, BID
     Route: 048
     Dates: start: 20140128, end: 20140410
  4. SYMBICORT [Concomitant]
     Indication: COUGH
     Dosage: (2 PUFFS) BID
     Route: 048
     Dates: start: 20140122, end: 20140410
  5. TESSALON [Concomitant]
     Indication: COUGH
     Dosage: 100 MG, Q8H
     Route: 048
     Dates: start: 20140122, end: 20140410
  6. XOPENEX HFA [Concomitant]
     Indication: COUGH
     Dosage: 45 MUG, (2 PUFFS 48HRS) UNK
     Route: 048
     Dates: start: 20140115, end: 20140410

REACTIONS (7)
  - Death [Fatal]
  - Gastrointestinal haemorrhage [Unknown]
  - Lung infection [Unknown]
  - Aortic thrombosis [Unknown]
  - Pulmonary mass [Unknown]
  - Cough [Unknown]
  - Anaemia [Unknown]
